FAERS Safety Report 8883931 (Version 1)
Quarter: 2012Q4

REPORT INFORMATION
  Report Type: 
  Country: US (occurrence: US)
  Receive Date: 20121102
  Receipt Date: 20121102
  Transmission Date: 20130627
  Serious: No
  Sender: FDA-Public Use
  Company Number: US-ASTRAZENECA-2012SE24575

PATIENT
  Age: 64 Year
  Sex: Male
  Weight: 83.5 kg

DRUGS (2)
  1. CRESTOR [Suspect]
     Route: 048
  2. METOPROLOL TARTRATE [Concomitant]

REACTIONS (6)
  - Dyspepsia [Unknown]
  - Arthralgia [Unknown]
  - Myalgia [Unknown]
  - Asthenia [Unknown]
  - Pain in extremity [Unknown]
  - Pain in extremity [Unknown]
